FAERS Safety Report 24142343 (Version 1)
Quarter: 2024Q3

REPORT INFORMATION
  Report Type: Spontaneous
  Country: ZA (occurrence: None)
  Receive Date: 20240726
  Receipt Date: 20240726
  Transmission Date: 20241017
  Serious: Yes (Death)
  Sender: ASTRAZENECA
  Company Number: 2024A167869

PATIENT
  Sex: Female

DRUGS (10)
  1. DAPAGLIFLOZIN PROPANEDIOL [Suspect]
     Active Substance: DAPAGLIFLOZIN PROPANEDIOL
     Indication: Type 2 diabetes mellitus
     Dosage: 10.0MG UNKNOWN
     Route: 048
  2. SPIRACTIN [Concomitant]
     Indication: Hypertension
     Dosage: 25.0MG UNKNOWN
     Route: 048
  3. SPIRACTIN [Concomitant]
     Indication: Oedema
     Dosage: 25.0MG UNKNOWN
     Route: 048
  4. SPIRACTIN [Concomitant]
     Indication: Cardiac failure
     Dosage: 25.0MG UNKNOWN
     Route: 048
  5. SPIRACTIN [Concomitant]
     Indication: Hepatic cirrhosis
     Dosage: 25.0MG UNKNOWN
     Route: 048
  6. SPIRACTIN [Concomitant]
     Indication: Renal impairment
     Dosage: 25.0MG UNKNOWN
     Route: 048
  7. ASPIRIN [Concomitant]
     Active Substance: ASPIRIN
     Indication: Thrombosis
     Dosage: 100.0MG UNKNOWN
     Route: 048
  8. CLOPIDOGREL BISULFATE [Concomitant]
     Active Substance: CLOPIDOGREL BISULFATE
     Indication: Thrombosis
     Dosage: 75.0MG UNKNOWN
     Route: 048
  9. CARVEDILOL [Concomitant]
     Active Substance: CARVEDILOL
     Indication: Hypertension
     Dosage: 5.0MG UNKNOWN
     Route: 048
  10. CARVEDILOL [Concomitant]
     Active Substance: CARVEDILOL
     Indication: Cardiac disorder
     Dosage: 5.0MG UNKNOWN
     Route: 048

REACTIONS (1)
  - Cardiac failure [Fatal]
